FAERS Safety Report 4350901-8 (Version None)
Quarter: 2004Q2

REPORT INFORMATION
  Report Type: 
  Country: None (occurrence: None)
  Receive Date: 20040428
  Receipt Date: 20040416
  Transmission Date: 20050107
  Serious: Yes (Hospitalization, Other)
  Sender: FDA-Public Use
  Company Number: 2004026316

PATIENT
  Sex: Female
  Weight: 75.7507 kg

DRUGS (2)
  1. NEURONTIN [Suspect]
     Indication: NEUROPATHY PERIPHERAL
     Dosage: 900 MG (TID), ORAL
     Route: 048
  2. ROFECOXIB [Concomitant]

REACTIONS (10)
  - AMNESIA [None]
  - BURNING SENSATION [None]
  - CONDITION AGGRAVATED [None]
  - DISTURBANCE IN ATTENTION [None]
  - FACIAL PAIN [None]
  - HEADACHE [None]
  - HYPOAESTHESIA [None]
  - NEUROPATHY [None]
  - PRURITUS [None]
  - WEIGHT DECREASED [None]
